FAERS Safety Report 6573733-9 (Version None)
Quarter: 2010Q1

REPORT INFORMATION
  Report Type: 
  Country: None (occurrence: None)
  Receive Date: 20100208
  Receipt Date: 20100129
  Transmission Date: 20100710
  Serious: Yes (Other)
  Sender: FDA-Public Use
  Company Number: B0569723A

PATIENT
  Sex: Male

DRUGS (7)
  1. PAXIL [Suspect]
     Indication: DEPRESSION
     Route: 048
     Dates: start: 20070421
  2. GRANDAXIN [Concomitant]
     Indication: ANXIETY
     Route: 048
     Dates: start: 20070421, end: 20070922
  3. LEXOTAN [Concomitant]
     Indication: ANXIETY
     Dosage: 2MG PER DAY
     Route: 048
     Dates: start: 20070421, end: 20070929
  4. LENDORMIN [Concomitant]
     Indication: INSOMNIA
     Route: 048
     Dates: start: 20070421, end: 20080405
  5. ROHYPNOL [Concomitant]
     Indication: INSOMNIA
     Dosage: 2MG PER DAY
     Route: 048
     Dates: start: 20070512, end: 20080115
  6. DEPAKENE [Concomitant]
     Indication: MOOD SWINGS
     Dosage: 200MG PER DAY
     Route: 048
     Dates: start: 20071222, end: 20080404
  7. LIMAS [Concomitant]
     Indication: MOOD SWINGS
     Dosage: 400MG PER DAY
     Route: 048
     Dates: start: 20090523, end: 20090811

REACTIONS (10)
  - ABULIA [None]
  - AGGRESSION [None]
  - DEPRESSION [None]
  - DIARRHOEA [None]
  - FRUSTRATION [None]
  - ILL-DEFINED DISORDER [None]
  - IMPAIRED WORK ABILITY [None]
  - MANIA [None]
  - MOOD ALTERED [None]
  - PALPITATIONS [None]
